FAERS Safety Report 15448844 (Version 2)
Quarter: 2018Q4

REPORT INFORMATION
  Report Type: Spontaneous
  Country: US (occurrence: US)
  Receive Date: 20180930
  Receipt Date: 20181013
  Transmission Date: 20190204
  Serious: No
  Sender: FDA-Public Use
  Company Number: US-JNJFOC-20180844170

PATIENT
  Age: 5 Decade
  Sex: Female

DRUGS (5)
  1. VIBERZI [Interacting]
     Active Substance: ELUXADOLINE
     Indication: DIARRHOEA
     Dosage: TOOK 3 TABLETS BEFORE STOPPING
     Route: 048
     Dates: start: 20180821, end: 20180822
  2. VIBERZI [Interacting]
     Active Substance: ELUXADOLINE
     Indication: IRRITABLE BOWEL SYNDROME
     Dosage: TOOK 3 TABLETS BEFORE STOPPING
     Route: 048
     Dates: start: 20180821, end: 20180822
  3. TYLENOL WITH CODEINE [Suspect]
     Active Substance: ACETAMINOPHEN\CODEINE PHOSPHATE
     Indication: DIARRHOEA
     Dosage: 6 DOSAGE FORMS DAILY;
     Route: 048
     Dates: start: 1988
  4. LOMOTIL [Concomitant]
     Active Substance: ATROPINE SULFATE\DIPHENOXYLATE HYDROCHLORIDE
     Indication: PRODUCT USED FOR UNKNOWN INDICATION
     Route: 065
  5. TYLENOL WITH CODEINE [Suspect]
     Active Substance: ACETAMINOPHEN\CODEINE PHOSPHATE
     Indication: IRRITABLE BOWEL SYNDROME
     Dosage: 6 DOSAGE FORMS DAILY;
     Route: 048
     Dates: start: 1988

REACTIONS (10)
  - Asthenia [Not Recovered/Not Resolved]
  - Dizziness [Not Recovered/Not Resolved]
  - Decreased appetite [Not Recovered/Not Resolved]
  - Vomiting [Recovered/Resolved]
  - Feeling abnormal [Not Recovered/Not Resolved]
  - Nausea [Not Recovered/Not Resolved]
  - Drug interaction [Not Recovered/Not Resolved]
  - Impaired driving ability [Not Recovered/Not Resolved]
  - Product use in unapproved indication [Unknown]
  - Malaise [Not Recovered/Not Resolved]

NARRATIVE: CASE EVENT DATE: 20180822
